FAERS Safety Report 14311410 (Version 2)
Quarter: 2018Q4

REPORT INFORMATION
  Report Type: Spontaneous
  Country: US (occurrence: US)
  Receive Date: 20171221
  Receipt Date: 20181217
  Transmission Date: 20190204
  Serious: No
  Sender: FDA-Public Use
  Company Number: US-NOVEN PHARMACEUTICALS, INC.-US2017000835

PATIENT

DRUGS (7)
  1. HUMERA [Concomitant]
     Active Substance: ADALIMUMAB
  2. MINIVELLE [Suspect]
     Active Substance: ESTRADIOL
     Dosage: 0.05 MG
     Route: 062
     Dates: start: 201803
  3. PROMETRIUM [Concomitant]
     Active Substance: PROGESTERONE
     Indication: ATROPHIC VULVOVAGINITIS
     Dosage: 100 MG, UNKNOWN
  4. MINIVELLE [Suspect]
     Active Substance: ESTRADIOL
     Indication: ATROPHIC VULVOVAGINITIS
     Dosage: 0.05 MG, UNKNOWN
     Route: 062
     Dates: start: 201701
  5. MINIVELLE [Suspect]
     Active Substance: ESTRADIOL
     Dosage: 0.05 MG
     Route: 062
  6. MINIVELLE [Suspect]
     Active Substance: ESTRADIOL
     Dosage: 0.05 MG
     Route: 062
  7. LIPITOR [Concomitant]
     Active Substance: ATORVASTATIN CALCIUM

REACTIONS (17)
  - Product adhesion issue [Recovered/Resolved]
  - Phlebitis superficial [Unknown]
  - Product quality issue [Unknown]
  - Wrong technique in product usage process [Unknown]
  - Feeling hot [Not Recovered/Not Resolved]
  - Skin induration [Unknown]
  - Vaginal haemorrhage [Not Recovered/Not Resolved]
  - Fall [Recovered/Resolved]
  - Musculoskeletal chest pain [Unknown]
  - Pain in extremity [Unknown]
  - Abdominal distension [Not Recovered/Not Resolved]
  - Weight increased [Not Recovered/Not Resolved]
  - Nervousness [Unknown]
  - Off label use [Not Recovered/Not Resolved]
  - Erythema [Recovered/Resolved]
  - Breast pain [Not Recovered/Not Resolved]
  - Abdominal pain upper [Not Recovered/Not Resolved]

NARRATIVE: CASE EVENT DATE: 201803
